FAERS Safety Report 14752542 (Version 3)
Quarter: 2018Q4

REPORT INFORMATION
  Report Type: Spontaneous
  Country: CA (occurrence: CA)
  Receive Date: 20180412
  Receipt Date: 20181022
  Transmission Date: 20190204
  Serious: Yes (Other)
  Sender: FDA-Public Use
  Company Number: CA-ALLERGAN-1819915US

PATIENT
  Age: 57 Year
  Sex: Female

DRUGS (2)
  1. OZURDEX [Suspect]
     Active Substance: DEXAMETHASONE
     Indication: CYSTOID MACULAR OEDEMA
     Dosage: UNK
     Route: 031
     Dates: start: 20180204, end: 20180204
  2. FAMPYRA [Concomitant]
     Active Substance: DALFAMPRIDINE
     Indication: MULTIPLE SCLEROSIS
     Dosage: UNK
     Route: 048
     Dates: start: 201502

REACTIONS (4)
  - Hypotonia [Unknown]
  - Complication of device insertion [Recovered/Resolved]
  - Vitreous haemorrhage [Recovered/Resolved]
  - Choroidal detachment [Unknown]

NARRATIVE: CASE EVENT DATE: 20180314
